FAERS Safety Report 5126486-5 (Version None)
Quarter: 2006Q4

REPORT INFORMATION
  Report Type: 
  Country: None (occurrence: None)
  Receive Date: 20061010
  Receipt Date: 20060927
  Transmission Date: 20070319
  Serious: Yes (Disabling, Other)
  Sender: FDA-Public Use
  Company Number: 2006045999

PATIENT
  Sex: Female

DRUGS (5)
  1. CELEBREX [Suspect]
     Indication: ARTHRITIS
     Dosage: 200 MG (200 MG, 1 IN 1 D)
     Dates: end: 20060101
  2. ARICEPT [Suspect]
     Indication: DEMENTIA ALZHEIMER'S TYPE
     Dosage: 5 MG (5 MG, 1 IN 1 D)
     Dates: start: 20060221, end: 20060101
  3. IBUPROFEN [Concomitant]
  4. LEXAPRO [Concomitant]
  5. NAMENDA [Concomitant]

REACTIONS (10)
  - ABASIA [None]
  - BALANCE DISORDER [None]
  - DEMENTIA ALZHEIMER'S TYPE [None]
  - DIARRHOEA [None]
  - DYSSTASIA [None]
  - FAECAL INCONTINENCE [None]
  - FALL [None]
  - LACERATION [None]
  - UPPER LIMB FRACTURE [None]
  - WRIST FRACTURE [None]
